FAERS Safety Report 17391029 (Version 2)
Quarter: 2020Q1

REPORT INFORMATION
  Report Type: Report from Study
  Country: ES (occurrence: ES)
  Receive Date: 20200207
  Receipt Date: 20200213
  Transmission Date: 20200409
  Serious: Yes (Death, Hospitalization)
  Sender: FDA-Public Use
  Company Number: ES-TEVA-2020-ES-1182404

PATIENT
  Age: 84 Year
  Sex: Male

DRUGS (5)
  1. ATORVASTATINA (7400A) [Suspect]
     Active Substance: ATORVASTATIN
     Indication: DYSLIPIDAEMIA
     Dosage: 40 MG 1 DAYS
     Route: 048
     Dates: start: 201611, end: 20190814
  2. FUROSEMIDA (1615A) [Concomitant]
     Active Substance: FUROSEMIDE
     Dosage: 40 MG 1 DAYS
     Route: 048
     Dates: start: 201706, end: 20190814
  3. BISOPROLOL (2328A) [Concomitant]
     Active Substance: BISOPROLOL
     Indication: HYPERTENSION
     Dosage: 5 MG 1 DAYS
     Route: 048
     Dates: start: 201312, end: 20190814
  4. SINTROM [Interacting]
     Active Substance: ACENOCOUMAROL
     Indication: ATRIAL FIBRILLATION
     Route: 048
     Dates: start: 201312, end: 20190814
  5. DUODART 0,5MG/0,4MG CAPSULAS DURAS 30 CAPSULAS [Concomitant]
     Indication: BENIGN PROSTATIC HYPERPLASIA
     Dosage: 1 DOSAGE FORMS 1 DAYS
     Route: 048
     Dates: start: 201603, end: 20190814

REACTIONS (2)
  - Drug interaction [Unknown]
  - Haemorrhage intracranial [Fatal]

NARRATIVE: CASE EVENT DATE: 20190814
